FAERS Safety Report 7289315-X (Version None)
Quarter: 2011Q1

REPORT INFORMATION
  Report Type: 
  Country: None (occurrence: None)
  Receive Date: 20110211
  Receipt Date: 20110207
  Transmission Date: 20110831
  Serious: Yes (Other)
  Sender: FDA-Public Use
  Company Number: DE-ABBOTT-11P-062-0703446-00

PATIENT
  Age: 69 Year
  Sex: Female

DRUGS (3)
  1. METHOTREXAT [Concomitant]
     Indication: PRODUCT USED FOR UNKNOWN INDICATION
     Dates: start: 20040101
  2. METHOTREXAT [Concomitant]
     Dates: end: 20040101
  3. HUMIRA [Suspect]
     Indication: RHEUMATOID ARTHRITIS
     Route: 058
     Dates: start: 20050501, end: 20100501

REACTIONS (2)
  - JOINT RANGE OF MOTION DECREASED [None]
  - FOOT OPERATION [None]
